FAERS Safety Report 10460217 (Version 1)
Quarter: 2014Q3

REPORT INFORMATION
  Report Type: Spontaneous
  Country: US (occurrence: US)
  Receive Date: 20140917
  Receipt Date: 20140917
  Transmission Date: 20150326
  Serious: Yes (Death, Hospitalization)
  Sender: FDA-Public Use
  Company Number: PHHY2014US117255

PATIENT
  Age: 7 Month
  Sex: Male

DRUGS (1)
  1. LANSOPRAZOLE. [Suspect]
     Active Substance: LANSOPRAZOLE
     Indication: GASTROOESOPHAGEAL REFLUX DISEASE
     Dosage: 15 MG, PER DAY

REACTIONS (10)
  - Ascites [Unknown]
  - Pyrexia [Unknown]
  - Death [Fatal]
  - Haemodynamic instability [Unknown]
  - Vomiting [Unknown]
  - Cardiopulmonary failure [Unknown]
  - Retroperitoneal haemorrhage [Unknown]
  - Abdominal distension [Unknown]
  - Diarrhoea [Unknown]
  - Clostridium difficile colitis [Unknown]
